FAERS Safety Report 8851185 (Version 1)
Quarter: 2012Q4

REPORT INFORMATION
  Report Type: 
  Country: US (occurrence: US)
  Receive Date: 20121019
  Receipt Date: 20121019
  Transmission Date: 20130627
  Serious: No
  Sender: FDA-Public Use
  Company Number: US-BRISTOL-MYERS SQUIBB COMPANY-16723017

PATIENT
  Age: 67 Year
  Sex: Male
  Weight: 82 kg

DRUGS (2)
  1. YERVOY [Suspect]
     Indication: METASTATIC MALIGNANT MELANOMA
     Dosage: Second treatment on 11May2012
31May2012and 21Jun2012. 
3 weeksx4
     Route: 042
     Dates: start: 20120419
  2. VEMURAFENIB [Suspect]
     Dates: start: 201009

REACTIONS (2)
  - Rash papular [Recovered/Resolved]
  - Diarrhoea [Recovering/Resolving]
